FAERS Safety Report 21365679 (Version 4)
Quarter: 2023Q1

REPORT INFORMATION
  Report Type: Other
  Country: US (occurrence: US)
  Receive Date: 20220922
  Receipt Date: 20230102
  Transmission Date: 20230417
  Serious: No
  Sender: FDA-Public Use
  Company Number: US-DECIPHERA PHARMACEUTICALS LLC-2022US000729

PATIENT
  Sex: Male

DRUGS (8)
  1. QINLOCK [Suspect]
     Active Substance: RIPRETINIB
     Indication: Product used for unknown indication
     Dosage: 150 MILLIGRAM, QD
     Route: 048
     Dates: start: 20220430
  2. QINLOCK [Suspect]
     Active Substance: RIPRETINIB
     Dosage: 100 MILLIGRAM, QD
     Route: 048
     Dates: start: 202209
  3. QINLOCK [Suspect]
     Active Substance: RIPRETINIB
     Dosage: 50 UNK
     Route: 048
     Dates: start: 20221108
  4. QINLOCK [Suspect]
     Active Substance: RIPRETINIB
     Dosage: 100 MILLIGRAM, QD
     Route: 048
  5. PROCHLORPERAZINE [Concomitant]
     Active Substance: PROCHLORPERAZINE
     Indication: Product used for unknown indication
     Dosage: UNK
  6. LUNESTA [Concomitant]
     Active Substance: ESZOPICLONE
     Indication: Product used for unknown indication
     Dosage: UNK
  7. OXYCODONE [Concomitant]
     Active Substance: OXYCODONE
     Indication: Product used for unknown indication
     Dosage: UNK
  8. OMEPRAZOLE [Concomitant]
     Active Substance: OMEPRAZOLE
     Indication: Product used for unknown indication
     Dosage: UNK

REACTIONS (4)
  - Feeling abnormal [Unknown]
  - Alopecia [Not Recovered/Not Resolved]
  - Fatigue [Unknown]
  - Underdose [Unknown]

NARRATIVE: CASE EVENT DATE: 20220826
